FAERS Safety Report 9923934 (Version 2)
Quarter: 2014Q1

REPORT INFORMATION
  Report Type: Spontaneous
  Country: US (occurrence: US)
  Receive Date: 20140225
  Receipt Date: 20140227
  Transmission Date: 20141002
  Serious: Yes (Other)
  Sender: FDA-Public Use
  Company Number: US-FRI-1000054485

PATIENT
  Age: 51 Year
  Sex: Male
  Weight: 96.61 kg

DRUGS (17)
  1. LINZESS [Suspect]
     Indication: CONSTIPATION
     Dosage: 145MCG AS NEEDED
     Route: 048
     Dates: start: 20140216
  2. AMLODIPINE [Concomitant]
     Indication: HYPERTENSION
     Dosage: 10MG
  3. LOSARTAN/HYDROCHLOROTHIAZIDE [Concomitant]
     Indication: HYPERTENSION
     Dosage: 100/25MG DAILY
  4. LOVAZA [Concomitant]
     Indication: BLOOD CHOLESTEROL INCREASED
     Dosage: 4GM
  5. VIT C [Concomitant]
     Indication: SUPPLEMENTATION THERAPY
     Dosage: 1000MG
  6. NAPROSYN [Concomitant]
     Indication: ARTHRITIS
     Dosage: 880MG
  7. NAPROSYN [Concomitant]
     Indication: PAIN
  8. SLO-NIACIN [Concomitant]
     Indication: BLOOD CHOLESTEROL INCREASED
     Dosage: 1000MG
  9. CARVEDILOL [Concomitant]
     Indication: HEART RATE INCREASED
     Dosage: 12.5MG
  10. DOCUSATE [Concomitant]
     Indication: CONSTIPATION
     Dosage: 400MG
  11. BISACODYL [Concomitant]
     Indication: CONSTIPATION
     Dosage: 5MG AS NEEDED
  12. SIMETHICONE [Concomitant]
     Indication: FLATULENCE
     Dosage: 250MG
  13. LORATADINE [Concomitant]
     Indication: SEASONAL ALLERGY
     Dosage: 10MG
  14. CLONOPIN [Concomitant]
     Indication: INSOMNIA
     Dosage: 1MG
  15. BACLOFEN [Concomitant]
     Indication: MUSCLE RELAXANT THERAPY
     Dosage: 5MG
  16. MIRTAZAPINE [Concomitant]
     Indication: ANXIETY
     Dosage: 15MG AS NEEDED
  17. MIRTAZAPINE [Concomitant]
     Indication: INSOMNIA

REACTIONS (3)
  - Diarrhoea haemorrhagic [Recovered/Resolved]
  - Diarrhoea [Recovered/Resolved]
  - Intentional drug misuse [Not Recovered/Not Resolved]
